FAERS Safety Report 21661757 (Version 2)
Quarter: 2022Q4

REPORT INFORMATION
  Report Type: Spontaneous
  Country: FR (occurrence: FR)
  Receive Date: 20221130
  Receipt Date: 20221212
  Transmission Date: 20230113
  Serious: Yes (Other)
  Sender: FDA-Public Use
  Company Number: FR-SAMSUNG BIOEPIS-SB-2022-30183

PATIENT
  Age: 65 Year
  Sex: Male
  Weight: 60 kg

DRUGS (22)
  1. INFLIXIMAB [Suspect]
     Active Substance: INFLIXIMAB
     Indication: Crohn^s disease
     Dosage: VIAL
     Route: 042
     Dates: start: 20220623
  2. INFLIXIMAB [Suspect]
     Active Substance: INFLIXIMAB
     Dosage: UNKNOWN
     Route: 065
  3. INFLIXIMAB [Suspect]
     Active Substance: INFLIXIMAB
     Dosage: UNKNOWN
     Route: 065
  4. INFLIXIMAB [Suspect]
     Active Substance: INFLIXIMAB
     Dosage: UNKNOWN
     Route: 065
  5. INFLIXIMAB [Suspect]
     Active Substance: INFLIXIMAB
     Dosage: UNKNOWN
     Route: 065
  6. INFLIXIMAB [Suspect]
     Active Substance: INFLIXIMAB
     Dosage: UNKNOWN
     Route: 065
  7. CALCIUM\CHOLECALCIFEROL [Concomitant]
     Active Substance: CALCIUM\CHOLECALCIFEROL
     Indication: Product used for unknown indication
     Dosage: 500MG/400 UI, 2 SACHETS, NOON
     Route: 048
     Dates: start: 20220614, end: 20220713
  8. PRIMPERAN [Concomitant]
     Active Substance: METOCLOPRAMIDE HYDROCHLORIDE
     Indication: Product used for unknown indication
     Dosage: 1 VIAL, IF NEEDED FOR 3 DAYS
     Route: 042
     Dates: start: 20220602, end: 20220605
  9. MORPHINE SULFATE [Concomitant]
     Active Substance: MORPHINE SULFATE
     Indication: Product used for unknown indication
     Route: 048
     Dates: start: 20220608, end: 20220615
  10. MORPHINE SULFATE [Concomitant]
     Active Substance: MORPHINE SULFATE
     Route: 048
     Dates: start: 20220615, end: 20220622
  11. MOVIPREP [Concomitant]
     Active Substance: ASCORBIC ACID\POLYETHYLENE GLYCOL 3350\POTASSIUM CHLORIDE\SODIUM ASCORBATE\SODIUM CHLORIDE\SODIUM SU
     Indication: Product used for unknown indication
     Dosage: 1 LITER, AT 17H, 20H
     Route: 048
     Dates: start: 20220602, end: 20220602
  12. ACETAMINOPHEN [Concomitant]
     Active Substance: ACETAMINOPHEN
     Indication: Product used for unknown indication
     Dosage: 2 CAPSULES, IF NEEDED
     Route: 048
     Dates: start: 20220615, end: 20220706
  13. ACUPAN [Concomitant]
     Active Substance: NEFOPAM HYDROCHLORIDE
     Indication: Product used for unknown indication
     Dosage: 20MG/2ML INJ VIAL
     Route: 048
     Dates: start: 20220602, end: 20220605
  14. PHLOROGLUCINOL [Concomitant]
     Active Substance: PHLOROGLUCINOL
     Indication: Product used for unknown indication
     Dosage: 2 VIALS, AT 6H, 14H, 22H
     Route: 042
     Dates: start: 20220609, end: 20220613
  15. MOVICOL [Concomitant]
     Active Substance: POLYETHYLENE GLYCOL 3350\POTASSIUM CHLORIDE\SODIUM BICARBONATE\SODIUM CHLORIDE
     Indication: Product used for unknown indication
     Dosage: SACHET 10 G, 1 SACHET, MORNING, NOON
     Route: 048
     Dates: start: 20220609, end: 20220627
  16. FOLIC ACID [Concomitant]
     Active Substance: FOLIC ACID
     Indication: Product used for unknown indication
     Dosage: 1 TABLET, MORNING
     Route: 048
     Dates: start: 20220603, end: 20220703
  17. ESOMEPRAZOLE MAGNESIUM [Concomitant]
     Active Substance: ESOMEPRAZOLE MAGNESIUM
     Indication: Product used for unknown indication
     Dosage: 1 TABLET, EVENING 30 MG ORODISPERSIBLE TABLET
     Route: 048
     Dates: start: 20220614, end: 20220713
  18. PREDNISOLONE [Concomitant]
     Active Substance: PREDNISOLONE
     Indication: Product used for unknown indication
     Dosage: 2 TABLETS, AT 8H 20 MG ORODISPERSIBLE TABLET
     Route: 048
     Dates: start: 20220613
  19. GLUCOSE, LIQUID\POTASSIUM CHLORIDE\SODIUM CHLORIDE [Concomitant]
     Active Substance: GLUCOSE, LIQUID\POTASSIUM CHLORIDE\SODIUM CHLORIDE
     Indication: Product used for unknown indication
     Dosage: CONTINUOUSLY, WITHIN 24H, IV, AT 19H FOR 14 DAYS
     Route: 042
     Dates: start: 20220530, end: 20220613
  20. CERNEVIT [Concomitant]
     Active Substance: VITAMINS
     Indication: Product used for unknown indication
     Dosage: 1 VIAL CONTINUOUSLY, WITHIN 24H, AT 19H FOR 14 DAYS
     Route: 042
     Dates: start: 20220530, end: 20220613
  21. SUPPLIVEN [Concomitant]
     Indication: Product used for unknown indication
     Dosage: INJ VIAL 10ML 1 VIAL CONTINUOUSLY, WITHIN 24H, AT 19H FOR 14 DAYS
     Route: 042
     Dates: start: 20220530, end: 20220613
  22. IRON\MINERALS\POTASSIUM IOD\SODIUM FLUORIDE\SODIUM MOLYBDATE\SODIUM SE [Concomitant]
     Active Substance: IRON\MINERALS\POTASSIUM IOD\SODIUM FLUORIDE\SODIUM MOLYBDATE\SODIUM SELENITE\ZINC
     Indication: Product used for unknown indication
     Dosage: 1 VIAL CONTINUOUSLY, WITHIN 24H, AT 19H FOR 14 DAYS
     Route: 042
     Dates: start: 20220530, end: 20220613

REACTIONS (2)
  - Cataract [Unknown]
  - Product use issue [Unknown]

NARRATIVE: CASE EVENT DATE: 20221101
